FAERS Safety Report 12583416 (Version 1)
Quarter: 2016Q3

REPORT INFORMATION
  Report Type: Spontaneous
  Country: DE (occurrence: DE)
  Receive Date: 20160722
  Receipt Date: 20160722
  Transmission Date: 20161109
  Serious: Yes (Hospitalization)
  Sender: FDA-Public Use
  Company Number: DE-DSJP-DSE-2016-124854

PATIENT

DRUGS (1)
  1. LIXIANA [Suspect]
     Active Substance: EDOXABAN TOSILATE MONOHYDRATE
     Indication: ATRIAL FIBRILLATION
     Dosage: 60 MG, QD
     Dates: start: 20160310, end: 20160613

REACTIONS (2)
  - Cerebrovascular accident [Recovered/Resolved with Sequelae]
  - Facial paralysis [Recovered/Resolved with Sequelae]

NARRATIVE: CASE EVENT DATE: 20160613
